FAERS Safety Report 24441099 (Version 1)
Quarter: 2024Q4

REPORT INFORMATION
  Report Type: Spontaneous
  Country: CO (occurrence: CO)
  Receive Date: 20241016
  Receipt Date: 20241016
  Transmission Date: 20250115
  Serious: Yes (Hospitalization)
  Sender: ACCORD
  Company Number: CO-MLMSERVICE-20240930-PI212026-00152-1

PATIENT
  Sex: Male

DRUGS (28)
  1. FLUOROURACIL [Suspect]
     Active Substance: FLUOROURACIL
     Indication: Adenocarcinoma of colon
     Dosage: EIGHTH SESSION OF THIS CHEMOTHERAPY REGIMEN
  2. IRINOTECAN [Suspect]
     Active Substance: IRINOTECAN
     Indication: Adenocarcinoma of colon
     Dosage: EIGHTH SESSION OF THIS CHEMOTHERAPY REGIMEN
  3. LEUCOVORIN [Suspect]
     Active Substance: LEUCOVORIN\LEUCOVORIN CALCIUM
     Indication: Adenocarcinoma of colon
     Dosage: EIGHTH SESSION OF THIS CHEMOTHERAPY REGIMEN
  4. CETUXIMAB [Suspect]
     Active Substance: CETUXIMAB
     Indication: Adenocarcinoma of colon
     Dosage: EIGHTH SESSION OF THIS CHEMOTHERAPY REGIMEN
  5. LEUCOVORIN [Suspect]
     Active Substance: LEUCOVORIN\LEUCOVORIN CALCIUM
     Indication: Metastases to lymph nodes
     Dosage: EIGHTH SESSION OF THIS CHEMOTHERAPY REGIMEN
  6. IRINOTECAN [Suspect]
     Active Substance: IRINOTECAN
     Indication: Metastases to lymph nodes
     Dosage: EIGHTH SESSION OF THIS CHEMOTHERAPY REGIMEN
  7. LEUCOVORIN [Suspect]
     Active Substance: LEUCOVORIN\LEUCOVORIN CALCIUM
     Indication: Metastases to reproductive organ
     Dosage: EIGHTH SESSION OF THIS CHEMOTHERAPY REGIMEN
  8. LEUCOVORIN [Suspect]
     Active Substance: LEUCOVORIN\LEUCOVORIN CALCIUM
     Indication: Metastases to bone
     Dosage: EIGHTH SESSION OF THIS CHEMOTHERAPY REGIMEN
  9. LEUCOVORIN [Suspect]
     Active Substance: LEUCOVORIN\LEUCOVORIN CALCIUM
     Indication: Metastases to lung
     Dosage: EIGHTH SESSION OF THIS CHEMOTHERAPY REGIMEN
  10. LEUCOVORIN [Suspect]
     Active Substance: LEUCOVORIN\LEUCOVORIN CALCIUM
     Indication: Metastases to spine
     Dosage: EIGHTH SESSION OF THIS CHEMOTHERAPY REGIMEN
  11. IRINOTECAN [Suspect]
     Active Substance: IRINOTECAN
     Indication: Metastases to reproductive organ
     Dosage: EIGHTH SESSION OF THIS CHEMOTHERAPY REGIMEN
  12. IRINOTECAN [Suspect]
     Active Substance: IRINOTECAN
     Indication: Metastases to bone
     Dosage: EIGHTH SESSION OF THIS CHEMOTHERAPY REGIMEN
  13. IRINOTECAN [Suspect]
     Active Substance: IRINOTECAN
     Indication: Metastases to spine
     Dosage: EIGHTH SESSION OF THIS CHEMOTHERAPY REGIMEN
  14. IRINOTECAN [Suspect]
     Active Substance: IRINOTECAN
     Indication: Metastases to lung
     Dosage: EIGHTH SESSION OF THIS CHEMOTHERAPY REGIMEN
  15. IRINOTECAN [Suspect]
     Active Substance: IRINOTECAN
     Indication: Metastases to liver
     Dosage: EIGHTH SESSION OF THIS CHEMOTHERAPY REGIMEN
  16. CETUXIMAB [Suspect]
     Active Substance: CETUXIMAB
     Indication: Metastases to bone
     Dosage: EIGHTH SESSION OF THIS CHEMOTHERAPY REGIMEN
  17. CETUXIMAB [Suspect]
     Active Substance: CETUXIMAB
     Indication: Metastases to lung
     Dosage: EIGHTH SESSION OF THIS CHEMOTHERAPY REGIMEN
  18. CETUXIMAB [Suspect]
     Active Substance: CETUXIMAB
     Indication: Metastases to spine
     Dosage: EIGHTH SESSION OF THIS CHEMOTHERAPY REGIMEN
  19. CETUXIMAB [Suspect]
     Active Substance: CETUXIMAB
     Indication: Metastases to reproductive organ
     Dosage: EIGHTH SESSION OF THIS CHEMOTHERAPY REGIMEN
  20. CETUXIMAB [Suspect]
     Active Substance: CETUXIMAB
     Indication: Metastases to lymph nodes
     Dosage: EIGHTH SESSION OF THIS CHEMOTHERAPY REGIMEN
  21. CETUXIMAB [Suspect]
     Active Substance: CETUXIMAB
     Indication: Metastases to liver
     Dosage: EIGHTH SESSION OF THIS CHEMOTHERAPY REGIMEN
  22. FLUOROURACIL [Suspect]
     Active Substance: FLUOROURACIL
     Indication: Metastases to spine
     Dosage: EIGHTH SESSION OF THIS CHEMOTHERAPY REGIMEN
  23. FLUOROURACIL [Suspect]
     Active Substance: FLUOROURACIL
     Indication: Metastases to lung
     Dosage: EIGHTH SESSION OF THIS CHEMOTHERAPY REGIMEN
  24. FLUOROURACIL [Suspect]
     Active Substance: FLUOROURACIL
     Indication: Metastases to bone
     Dosage: EIGHTH SESSION OF THIS CHEMOTHERAPY REGIMEN
  25. FLUOROURACIL [Suspect]
     Active Substance: FLUOROURACIL
     Indication: Metastases to lymph nodes
     Dosage: EIGHTH SESSION OF THIS CHEMOTHERAPY REGIMEN
  26. FLUOROURACIL [Suspect]
     Active Substance: FLUOROURACIL
     Indication: Metastases to liver
     Dosage: EIGHTH SESSION OF THIS CHEMOTHERAPY REGIMEN
  27. FLUOROURACIL [Suspect]
     Active Substance: FLUOROURACIL
     Indication: Metastases to reproductive organ
     Dosage: EIGHTH SESSION OF THIS CHEMOTHERAPY REGIMEN
  28. LEUCOVORIN [Suspect]
     Active Substance: LEUCOVORIN\LEUCOVORIN CALCIUM
     Indication: Metastases to liver
     Dosage: EIGHTH SESSION OF THIS CHEMOTHERAPY REGIMEN

REACTIONS (2)
  - Rash [Unknown]
  - Anaemia [Unknown]
